FAERS Safety Report 13807044 (Version 4)
Quarter: 2018Q4

REPORT INFORMATION
  Report Type: Report from Study
  Country: US (occurrence: US)
  Receive Date: 20170728
  Receipt Date: 20181017
  Transmission Date: 20190204
  Serious: No
  Sender: FDA-Public Use
  Company Number: US-AMGEN-USASL2017108162

PATIENT
  Age: 74 Year
  Sex: Female

DRUGS (2)
  1. REPATHA [Suspect]
     Active Substance: EVOLOCUMAB
     Indication: BLOOD CHOLESTEROL INCREASED
     Dosage: 140 MG, Q2WK
     Route: 065
  2. REPATHA [Suspect]
     Active Substance: EVOLOCUMAB
     Indication: HYPERLIPIDAEMIA

REACTIONS (8)
  - Dysstasia [Recovered/Resolved]
  - Hepatic enzyme abnormal [Unknown]
  - Nausea [Unknown]
  - Blood triglycerides increased [Unknown]
  - Breast pain [Recovered/Resolved]
  - Blood alkaline phosphatase increased [Unknown]
  - Hypertension [Unknown]
  - Injection site pain [Unknown]

NARRATIVE: CASE EVENT DATE: 20170627
